FAERS Safety Report 10983311 (Version 2)
Quarter: 2015Q2

REPORT INFORMATION
  Report Type: Spontaneous
  Country: US (occurrence: US)
  Receive Date: 20150403
  Receipt Date: 20150427
  Transmission Date: 20150821
  Serious: Yes (Other)
  Sender: FDA-Public Use
  Company Number: US-AMGEN-USASP2015031527

PATIENT
  Age: 70 Year
  Sex: Female
  Weight: 60.32 kg

DRUGS (1)
  1. PROLIA [Suspect]
     Active Substance: DENOSUMAB
     Indication: OSTEOPOROSIS POSTMENOPAUSAL
     Dosage: UNK UNK, UNK
     Route: 058
     Dates: start: 20150204

REACTIONS (3)
  - Hand fracture [Unknown]
  - Fall [Unknown]
  - Foot fracture [Unknown]

NARRATIVE: CASE EVENT DATE: 2015
